FAERS Safety Report 13999547 (Version 1)
Quarter: 2017Q3

REPORT INFORMATION
  Report Type: Spontaneous
  Country: FR (occurrence: FR)
  Receive Date: 20170922
  Receipt Date: 20170922
  Transmission Date: 20171128
  Serious: Yes (Hospitalization)
  Sender: FDA-Public Use
  Company Number: FR-ROCHE-1995796

PATIENT
  Age: 13 Year
  Sex: Male

DRUGS (8)
  1. CELLCEPT [Suspect]
     Active Substance: MYCOPHENOLATE MOFETIL\MYCOPHENOLATE MOFETIL HYDROCHLORIDE
     Indication: MESANGIOPROLIFERATIVE GLOMERULONEPHRITIS
     Route: 048
     Dates: start: 201703, end: 20170809
  2. INEXIUM [Concomitant]
     Active Substance: ESOMEPRAZOLE
     Route: 065
     Dates: start: 201702
  3. PARACETAMOL [Concomitant]
     Active Substance: ACETAMINOPHEN
  4. LOSARTAN. [Suspect]
     Active Substance: LOSARTAN
     Indication: PROTEINURIA
     Route: 048
     Dates: start: 201707, end: 20170809
  5. ENALAPRIL [Suspect]
     Active Substance: ENALAPRIL
     Indication: PROTEINURIA
     Route: 048
     Dates: start: 201702, end: 20170809
  6. CORTANCYL [Concomitant]
     Active Substance: PREDNISONE
     Route: 065
     Dates: start: 201702
  7. NALBUPHINE [Concomitant]
     Active Substance: NALBUPHINE
  8. GLUCOSE [Concomitant]
     Active Substance: DEXTROSE
     Route: 065

REACTIONS (3)
  - Intentional product use issue [Unknown]
  - Off label use [Unknown]
  - Oedematous pancreatitis [Recovered/Resolved]

NARRATIVE: CASE EVENT DATE: 20170809
